FAERS Safety Report 5249849-6 (Version None)
Quarter: 2007Q1

REPORT INFORMATION
  Report Type: 
  Country: None (occurrence: None)
  Receive Date: 20070228
  Receipt Date: 20070227
  Transmission Date: 20070707
  Serious: Yes (Other)
  Sender: FDA-Public Use
  Company Number: FR-GLAXOSMITHKLINE-B0451646A

PATIENT
  Sex: Male

DRUGS (6)
  1. PAROXETINE HCL [Suspect]
     Indication: DRUG USE FOR UNKNOWN INDICATION
     Dosage: 2TAB PER DAY
     Route: 048
     Dates: start: 20061101
  2. ZYPREXA [Concomitant]
  3. TERCIAN [Concomitant]
  4. NORSET [Concomitant]
  5. DEPAMIDE [Concomitant]
  6. PRAZEPAM [Concomitant]

REACTIONS (1)
  - LOSS OF CONSCIOUSNESS [None]
